FAERS Safety Report 8552087-2 (Version None)
Quarter: 2012Q3

REPORT INFORMATION
  Report Type: 
  Country: None (occurrence: None)
  Receive Date: 20120731
  Receipt Date: 20120720
  Transmission Date: 20120928
  Serious: Yes (Other)
  Sender: FDA-Public Use
  Company Number: US-BIOGENIDEC-2012BI026533

PATIENT
  Sex: Male

DRUGS (8)
  1. FOSAMAX [Concomitant]
     Route: 048
  2. SYNTHROID [Concomitant]
     Indication: HYPOTHYROIDISM
     Route: 048
  3. ASPIRIN [Concomitant]
     Route: 048
  4. LIORESAL [Concomitant]
     Route: 048
  5. PROZAC [Concomitant]
     Route: 048
  6. TYSABRI [Suspect]
     Indication: MULTIPLE SCLEROSIS
     Route: 042
     Dates: start: 20080213
  7. LUMIGAN [Concomitant]
     Route: 047
  8. VITAMIN D [Concomitant]
     Route: 048

REACTIONS (1)
  - PROGRESSIVE MULTIFOCAL LEUKOENCEPHALOPATHY [None]
